FAERS Safety Report 5629295-3 (Version None)
Quarter: 2008Q1

REPORT INFORMATION
  Report Type: 
  Country: None (occurrence: None)
  Receive Date: 20080218
  Receipt Date: 20080211
  Transmission Date: 20080703
  Serious: Yes (Other)
  Sender: FDA-Public Use
  Company Number: US-BAYER-200714658NA

PATIENT
  Age: 35 Year
  Sex: Female
  Weight: 98 kg

DRUGS (3)
  1. MIRENA [Suspect]
     Indication: CONTRACEPTION
     Route: 015
     Dates: start: 20070701, end: 20071101
  2. SOMA [Concomitant]
     Indication: FIBROMYALGIA
     Route: 048
     Dates: start: 20061101
  3. VALIUM [Concomitant]
     Indication: FIBROMYALGIA
     Route: 048
     Dates: start: 20070401

REACTIONS (3)
  - AMENORRHOEA [None]
  - CERVICITIS [None]
  - COITAL BLEEDING [None]
